FAERS Safety Report 4758205-6 (Version None)
Quarter: 2005Q3

REPORT INFORMATION
  Report Type: 
  Country: None (occurrence: None)
  Receive Date: 20050831
  Receipt Date: 20050726
  Transmission Date: 20060218
  Serious: Yes (Hospitalization, Other)
  Sender: FDA-Public Use
  Company Number: US-MERCK-0507USA04132

PATIENT
  Age: 66 Year
  Sex: Male
  Weight: 107 kg

DRUGS (11)
  1. VIOXX [Suspect]
     Indication: ARTHRITIS
     Route: 048
     Dates: start: 19990101, end: 20040901
  2. VIOXX [Suspect]
     Indication: ARTHRALGIA
     Route: 048
     Dates: start: 19990101, end: 20040901
  3. REZULIN [Concomitant]
     Route: 065
  4. GLUCOPHAGE [Concomitant]
     Route: 065
  5. GLYSET [Concomitant]
     Route: 065
  6. INSULIN [Concomitant]
     Route: 065
  7. HYZAAR [Concomitant]
     Route: 048
  8. NEXIUM [Concomitant]
     Route: 065
  9. PLAVIX [Concomitant]
     Route: 065
  10. ASPIRIN [Concomitant]
     Route: 065
  11. CARDURA [Concomitant]
     Route: 065

REACTIONS (3)
  - CARDIAC DISORDER [None]
  - MYOCARDIAL INFARCTION [None]
  - PROSTATIC DISORDER [None]
